FAERS Safety Report 17086744 (Version 2)
Quarter: 2019Q4

REPORT INFORMATION
  Report Type: Spontaneous
  Country: HU (occurrence: HU)
  Receive Date: 20191128
  Receipt Date: 20191207
  Transmission Date: 20200122
  Serious: Yes (Other)
  Sender: FDA-Public Use
  Company Number: HU-ROCHE-2484581

PATIENT
  Age: 15 Year
  Sex: Male
  Weight: 95 kg

DRUGS (2)
  1. HEMLIBRA [Suspect]
     Active Substance: EMICIZUMAB-KXWH
     Indication: FACTOR VIII DEFICIENCY
     Dosage: LOADING DOSE: 3 AMPOULES OF 60 MG AND 1 AMPOULE OF 105 MG
     Route: 065
     Dates: start: 201910, end: 201911
  2. HEMLIBRA [Suspect]
     Active Substance: EMICIZUMAB-KXWH
     Dosage: DOSE REDUCED
     Route: 065
     Dates: start: 20191111

REACTIONS (2)
  - Upper respiratory tract infection [Recovered/Resolved]
  - Haemarthrosis [Recovered/Resolved]

NARRATIVE: CASE EVENT DATE: 20191109
